FAERS Safety Report 8973497 (Version 1)
Quarter: 2012Q4

REPORT INFORMATION
  Report Type: 
  Country: US (occurrence: US)
  Receive Date: 20121218
  Receipt Date: 20121218
  Transmission Date: 20130627
  Serious: No
  Sender: FDA-Public Use
  Company Number: US-BRISTOL-MYERS SQUIBB COMPANY-16828949

PATIENT
  Sex: Male

DRUGS (1)
  1. ABILIFY TABS [Suspect]
     Dosage: 6 weeks.

REACTIONS (2)
  - Insomnia [Unknown]
  - Hyperhidrosis [Unknown]
